FAERS Safety Report 7114249-0 (Version None)
Quarter: 2010Q4

REPORT INFORMATION
  Report Type: 
  Country: None (occurrence: None)
  Receive Date: 20101119
  Receipt Date: 20101110
  Transmission Date: 20110411
  Serious: Yes (Life-Threatening, Hospitalization, Other)
  Sender: FDA-Public Use
  Company Number: JP-ROCHE-738004

PATIENT
  Sex: Male
  Weight: 52 kg

DRUGS (3)
  1. AVASTIN [Suspect]
     Indication: LUNG ADENOCARCINOMA METASTATIC
     Route: 041
     Dates: start: 20101007, end: 20101007
  2. CARBOPLATIN [Concomitant]
     Route: 041
     Dates: start: 20101007, end: 20101007
  3. PACLITAXEL [Concomitant]
     Route: 041
     Dates: start: 20101007, end: 20101007

REACTIONS (2)
  - DIVERTICULAR PERFORATION [None]
  - DIVERTICULITIS [None]
